FAERS Safety Report 9863870 (Version 4)
Quarter: 2014Q1

REPORT INFORMATION
  Report Type: Spontaneous
  Country: IE (occurrence: IE)
  Receive Date: 20140203
  Receipt Date: 20140224
  Transmission Date: 20141002
  Serious: Yes (Hospitalization)
  Sender: FDA-Public Use
  Company Number: PHFR2014IE000490

PATIENT
  Age: 36 Year
  Sex: Male

DRUGS (6)
  1. CLOZARIL [Suspect]
     Dosage: 350 MG, QD
     Route: 048
     Dates: start: 2004
  2. CLOZARIL [Suspect]
     Dosage: UNK
     Route: 048
     Dates: start: 20110413
  3. CLOZARIL [Suspect]
     Dosage: 350 MG, QD
     Route: 048
     Dates: end: 20140105
  4. SERTRALINE [Concomitant]
     Dosage: 100 MG, DAILY
     Route: 048
     Dates: start: 20131010, end: 20140105
  5. CLOPIXOL                           /00876701/ [Concomitant]
     Dosage: 200 MG, DAILY
     Route: 030
     Dates: start: 20140206
  6. CLOPIXOL                           /00876701/ [Concomitant]
     Dosage: 200 MG, DAILY
     Route: 030
     Dates: start: 20140213

REACTIONS (3)
  - Hepatitis C [Recovering/Resolving]
  - Liver function test abnormal [Recovered/Resolved]
  - Jaundice [Unknown]
